FAERS Safety Report 11617713 (Version 6)
Quarter: 2023Q2

REPORT INFORMATION
  Report Type: Report from Study
  Country: US (occurrence: US)
  Receive Date: 20151009
  Receipt Date: 20230511
  Transmission Date: 20230721
  Serious: Yes (Other)
  Sender: FDA-Public Use
  Company Number: US-JAZZ-2015-US-015478

PATIENT
  Age: 45 Year
  Sex: Female
  Weight: 70 kg

DRUGS (32)
  1. XYREM [Suspect]
     Active Substance: SODIUM OXYBATE
     Indication: Narcolepsy
     Dosage: 2.25 GRAM, BID
     Route: 048
     Dates: start: 200407
  2. XYREM [Suspect]
     Active Substance: SODIUM OXYBATE
     Indication: Cataplexy
     Dosage: DOSE ADJUSTMENT
  3. XYREM [Suspect]
     Active Substance: SODIUM OXYBATE
     Dosage: 6 GRAM, BID
     Route: 048
     Dates: start: 200902
  4. XYREM [Suspect]
     Active Substance: SODIUM OXYBATE
     Dosage: 4.5 GRAM, QHS
     Route: 048
  5. FENTANYL TRANSDERMAL SYSTEM [Suspect]
     Active Substance: FENTANYL
     Indication: Pain
     Dosage: 75 ?G/HOUR
     Route: 062
     Dates: start: 20120926
  6. OXYCODONE HYDROCHLORIDE [Suspect]
     Active Substance: OXYCODONE HYDROCHLORIDE
     Indication: Breakthrough pain
     Dosage: 15 MG, PRN
     Dates: start: 20130425
  7. MAGNESIUM [Suspect]
     Active Substance: MAGNESIUM
     Indication: Anxiety
     Dosage: UNK
     Route: 048
  8. MAGNESIUM [Suspect]
     Active Substance: MAGNESIUM
     Indication: Muscle relaxant therapy
  9. MAGNESIUM [Suspect]
     Active Substance: MAGNESIUM
     Indication: Sleep disorder
  10. MAGNESIUM [Suspect]
     Active Substance: MAGNESIUM
     Indication: Diarrhoea
  11. FLECTOR [Suspect]
     Active Substance: DICLOFENAC EPOLAMINE
     Indication: Antiinflammatory therapy
     Dosage: 180 MG, BID
     Route: 062
  12. NUVIGIL [Suspect]
     Active Substance: ARMODAFINIL
     Indication: Somnolence
     Dosage: 250 MG, QD
     Route: 048
     Dates: start: 20101201
  13. DURAGESIC [Suspect]
     Active Substance: FENTANYL
     Indication: Product used for unknown indication
     Dosage: UNK
  14. ATIVAN [Suspect]
     Active Substance: LORAZEPAM
     Indication: Product used for unknown indication
     Dosage: 2 MG, BID
     Route: 048
     Dates: start: 20130425
  15. DIAZEPAM [Suspect]
     Active Substance: DIAZEPAM
     Indication: Product used for unknown indication
     Dosage: 10 MG, AT BEDTIME
     Route: 048
     Dates: start: 20130717
  16. KLONOPIN [Suspect]
     Active Substance: CLONAZEPAM
     Indication: Product used for unknown indication
     Dosage: 2 MG AT BED TIME, 1/2 TO 1 PILL DURING DAT
     Dates: start: 20130425
  17. ROZEREM [Suspect]
     Active Substance: RAMELTEON
     Indication: Product used for unknown indication
     Dosage: 8 MG, AT BEDTIME
     Route: 048
  18. SILENOR [Suspect]
     Active Substance: DOXEPIN HYDROCHLORIDE
     Indication: Product used for unknown indication
     Dosage: 6 MG, AT BEDTIME
     Route: 048
  19. TIZANIDINE HYDROCHLORIDE [Suspect]
     Active Substance: TIZANIDINE HYDROCHLORIDE
     Indication: Product used for unknown indication
     Dosage: 4 MILLIGRAM, BID
     Route: 048
     Dates: start: 20131201
  20. LOMOTIL [Suspect]
     Active Substance: ATROPINE SULFATE\DIPHENOXYLATE HYDROCHLORIDE
     Indication: Product used for unknown indication
     Dosage: UNK
     Route: 048
     Dates: start: 20140228
  21. OMEPRAZOLE [Concomitant]
     Active Substance: OMEPRAZOLE
     Indication: Reflux gastritis
     Dosage: 20 MG, QD
  22. VITAMIN B3 [Concomitant]
     Active Substance: NIACIN
     Indication: Product used for unknown indication
     Dosage: UNK
  23. AMBIEN [Concomitant]
     Active Substance: ZOLPIDEM TARTRATE
     Indication: Product used for unknown indication
     Dosage: UNK
     Dates: start: 20141121
  24. SONATA [Concomitant]
     Active Substance: ZALEPLON
     Indication: Product used for unknown indication
     Dosage: UNK
  25. LOW-OGESTREL [Concomitant]
     Active Substance: ETHINYL ESTRADIOL\NORGESTREL
     Indication: Contraception
     Dosage: 1 DOSAGE FORM, QD
  26. LOW-OGESTREL [Concomitant]
     Active Substance: ETHINYL ESTRADIOL\NORGESTREL
     Indication: Hormone replacement therapy
  27. EPIPEN [Concomitant]
     Active Substance: EPINEPHRINE
     Indication: Anaphylactic reaction
     Dosage: UNK
  28. ZOFRAN [Concomitant]
     Active Substance: ONDANSETRON HYDROCHLORIDE
     Indication: Nausea
     Dosage: UNK
     Route: 048
  29. TIMOLOL MALEATE [Concomitant]
     Active Substance: TIMOLOL MALEATE
     Indication: Product used for unknown indication
     Dosage: UNK
     Dates: start: 20161201
  30. VITAMIN D3 [Concomitant]
     Active Substance: CHOLECALCIFEROL
     Indication: Product used for unknown indication
     Dosage: UNK
     Dates: start: 20101201
  31. BELSOMRA [Concomitant]
     Active Substance: SUVOREXANT
     Indication: Product used for unknown indication
     Dosage: UNK
     Dates: start: 20190321
  32. DOXEPIN HCL [Concomitant]
     Active Substance: DOXEPIN HYDROCHLORIDE
     Indication: Product used for unknown indication
     Dosage: UNK
     Dates: start: 20200620

REACTIONS (6)
  - Drug dependence [Not Recovered/Not Resolved]
  - Constipation [Not Recovered/Not Resolved]
  - Hyperhidrosis [Not Recovered/Not Resolved]
  - Withdrawal syndrome [Unknown]
  - Skin burning sensation [Unknown]
  - Intentional product use issue [Unknown]

NARRATIVE: CASE EVENT DATE: 20151001
